FAERS Safety Report 5631376-5 (Version None)
Quarter: 2008Q1

REPORT INFORMATION
  Report Type: 
  Country: None (occurrence: None)
  Receive Date: 20080212
  Receipt Date: 20080130
  Transmission Date: 20080703
  Serious: Yes (Death)
  Sender: FDA-Public Use
  Company Number: OPER20080010

PATIENT
  Age: 17 Year
  Sex: Male
  Weight: 58.9676 kg

DRUGS (4)
  1. OPANA ER [Suspect]
     Dosage: INTRA-NASAL
     Route: 045
     Dates: end: 20071215
  2. XANAX [Suspect]
     Dosage: INTRA-NASAL
     Route: 045
     Dates: end: 20071215
  3. ALCOHOL [Suspect]
     Dosage: ORAL
     Route: 048
     Dates: start: 20071214, end: 20071214
  4. MARIJUANA [Suspect]
     Dosage: INHALATION
     Route: 055

REACTIONS (8)
  - ACCIDENTAL DEATH [None]
  - DRUG ABUSE [None]
  - INTENTIONAL DRUG MISUSE [None]
  - LOSS OF CONSCIOUSNESS [None]
  - POISONING [None]
  - PULMONARY CONGESTION [None]
  - PULMONARY OEDEMA [None]
  - RESPIRATORY ARREST [None]
